FAERS Safety Report 8895704 (Version 1)
Quarter: 2012Q4

REPORT INFORMATION
  Report Type: 
  Country: FR (occurrence: FR)
  Receive Date: 20121107
  Receipt Date: 20121107
  Transmission Date: 20130627
  Serious: Yes (Hospitalization, Other)
  Sender: FDA-Public Use
  Company Number: FR-BAYER-2012-114646

PATIENT
  Age: 16 Month
  Sex: Male

DRUGS (4)
  1. ACETYLSALICYLIC ACID (} 100 MG) [Suspect]
     Route: 048
  2. METOCLOPRAMIDE [Suspect]
     Route: 048
  3. ADIARIL [Concomitant]
     Indication: GASTROENTERITIS
     Dosage: UNK
     Route: 048
  4. ADIARIL [Concomitant]
     Indication: ORAL REHYDRATION

REACTIONS (6)
  - Somnolence [Unknown]
  - Epilepsy [Unknown]
  - Coma [Unknown]
  - Hypoglycaemia [Unknown]
  - Metabolic acidosis [Unknown]
  - Wrong drug administered [Unknown]
